FAERS Safety Report 7680139-8 (Version None)
Quarter: 2011Q3

REPORT INFORMATION
  Report Type: 
  Country: None (occurrence: None)
  Receive Date: 20110812
  Receipt Date: 20110801
  Transmission Date: 20111222
  Serious: Yes (Other)
  Sender: FDA-Public Use
  Company Number: DE-UCBSA-034194

PATIENT
  Age: 65 Year
  Sex: Female

DRUGS (3)
  1. NEUPRO [Suspect]
     Indication: PARKINSON'S DISEASE
     Dates: start: 20110301
  2. PRAMIPEXOLE DIHYDROCHLORIDE [Concomitant]
  3. ACELECT [Concomitant]

REACTIONS (2)
  - RESPIRATORY DISTRESS [None]
  - DYSPNOEA [None]
